FAERS Safety Report 5334848-6 (Version None)
Quarter: 2007Q2

REPORT INFORMATION
  Report Type: 
  Country: None (occurrence: None)
  Receive Date: 20070525
  Receipt Date: 20070518
  Transmission Date: 20071010
  Serious: Yes (Hospitalization, Other)
  Sender: FDA-Public Use
  Company Number: US-MERCK-0605USA04312

PATIENT
  Age: 46 Year
  Sex: Female
  Weight: 51 kg

DRUGS (26)
  1. FOSAMAX [Suspect]
     Indication: OSTEOPOROSIS
     Route: 048
     Dates: end: 20060101
  2. FOSAMAX [Suspect]
     Route: 048
     Dates: start: 20000101
  3. CORTICOSTEROIDS (UNSPECIFIED) [Concomitant]
     Route: 065
     Dates: start: 19920101
  4. HORMONES (UNSPECIFIED) [Concomitant]
     Route: 065
     Dates: start: 19920101
  5. [THERAPY UNSPECIFIED] [Concomitant]
     Indication: RHEUMATOID ARTHRITIS
     Route: 065
     Dates: start: 19920101
  6. SYNTHROID [Concomitant]
     Indication: THYROID DISORDER
     Route: 065
  7. IODINE-131 [Concomitant]
     Indication: HYPOTHYROIDISM
     Route: 065
     Dates: start: 19980101
  8. VITAMINS (UNSPECIFIED) [Concomitant]
     Route: 065
  9. CALCIUM (UNSPECIFIED) [Concomitant]
     Route: 065
  10. VIVELLE [Concomitant]
     Route: 065
  11. ENBREL [Concomitant]
     Route: 065
  12. MORPHINE [Concomitant]
     Route: 065
  13. MEDROL [Concomitant]
     Route: 065
  14. PRILOSEC [Concomitant]
     Route: 065
  15. REGLAN [Concomitant]
     Route: 065
  16. TYLENOL [Concomitant]
     Route: 065
  17. EXCEDRIN (MIGRAINE) [Concomitant]
     Route: 065
  18. SENOKOT [Concomitant]
     Route: 065
  19. REMICADE [Concomitant]
     Route: 065
     Dates: end: 20050503
  20. ACIPHEX [Concomitant]
     Route: 065
     Dates: end: 20040427
  21. CELEBREX [Concomitant]
     Route: 065
  22. PERCOCET [Concomitant]
     Route: 065
  23. FENTANYL ORALET [Concomitant]
     Route: 065
  24. VICODIN [Concomitant]
     Route: 065
  25. FORTEO [Concomitant]
     Route: 065
  26. METHOTREXATE [Concomitant]
     Route: 058

REACTIONS (13)
  - ACUTE RESPIRATORY DISTRESS SYNDROME [None]
  - ANAEMIA [None]
  - ASTHMA [None]
  - BRONCHITIS [None]
  - DEPRESSION [None]
  - DRUG INEFFECTIVE [None]
  - DUODENAL ULCER PERFORATION [None]
  - HIP FRACTURE [None]
  - INSOMNIA [None]
  - LETHARGY [None]
  - OSTEOMYELITIS [None]
  - OSTEONECROSIS [None]
  - RHEUMATOID ARTHRITIS [None]
